FAERS Safety Report 5196543-6 (Version None)
Quarter: 2006Q4

REPORT INFORMATION
  Report Type: 
  Country: None (occurrence: None)
  Receive Date: 20061227
  Receipt Date: 20061211
  Transmission Date: 20070319
  Serious: Yes (Other)
  Sender: FDA-Public Use
  Company Number: S06-UKI-05363-01

PATIENT
  Sex: Male
  Weight: 105 kg

DRUGS (5)
  1. CITALOPRAM HYDROBROMIDE [Suspect]
     Indication: DEPRESSION
     Dosage: 30 MG QD PO
     Route: 048
     Dates: start: 20061020, end: 20061026
  2. BUPRENORPHINE HCL [Concomitant]
  3. LORAZEPAM [Concomitant]
  4. NITRAZEPAM [Concomitant]
  5. ZOPICLONE [Concomitant]

REACTIONS (2)
  - BLISTER [None]
  - RASH [None]
